FAERS Safety Report 15213492 (Version 1)
Quarter: 2018Q3

REPORT INFORMATION
  Report Type: Spontaneous
  Country: US (occurrence: US)
  Receive Date: 20180702
  Receipt Date: 20180702
  Transmission Date: 20181010
  Serious: Yes (Death)
  Sender: FDA-Public Use
  Company Number: None

PATIENT
  Age: 56 Year
  Sex: Male

DRUGS (1)
  1. PREDNISONE 5MG TABLETS [Suspect]
     Active Substance: PREDNISONE
     Indication: RENAL TRANSPLANT
     Dosage: 1 TAB MON, WED, FRI PO
     Route: 048
     Dates: start: 20170707, end: 20180520

REACTIONS (1)
  - Death [None]

NARRATIVE: CASE EVENT DATE: 20180520
